FAERS Safety Report 4515744-0 (Version None)
Quarter: 2004Q4

REPORT INFORMATION
  Report Type: 
  Country: None (occurrence: None)
  Receive Date: 20041122
  Receipt Date: 20041115
  Transmission Date: 20050328
  Serious: Yes (Hospitalization)
  Sender: FDA-Public Use
  Company Number: ZLBIGIV/04/30/USA

PATIENT
  Age: 30 Year
  Sex: Female
  Weight: 79.3795 kg

DRUGS (2)
  1. CARIMUNE [Suspect]
     Indication: MYASTHENIA GRAVIS
     Dosage: 79 G, EVERY 2 WEEKS, IV
     Route: 042
     Dates: end: 20041030
  2. GAMMAGARD [Suspect]
     Indication: MYASTHENIA GRAVIS
     Dosage: 78 G, O.A.D., IV
     Route: 042
     Dates: start: 20041112, end: 20041113

REACTIONS (2)
  - ASTHENIA [None]
  - PULMONARY EMBOLISM [None]
